FAERS Safety Report 21566925 (Version 1)
Quarter: 2022Q4

REPORT INFORMATION
  Report Type: Spontaneous
  Country: US (occurrence: None)
  Receive Date: 20221107
  Receipt Date: 20221107
  Transmission Date: 20230112
  Serious: Yes (Hospitalization, Disabling, Other)
  Sender: FDA-Public Use
  Company Number: None

PATIENT
  Age: 75 Year
  Sex: Female
  Weight: 76.5 kg

DRUGS (4)
  1. SIMVASTATIN [Suspect]
     Active Substance: SIMVASTATIN
     Indication: Blood cholesterol increased
     Dosage: FREQUENCY : AT BEDTIME;?
     Route: 048
     Dates: start: 20161105, end: 20180203
  2. BENAZEPRIL [Concomitant]
     Active Substance: BENAZEPRIL HYDROCHLORIDE
  3. Ampolpine [Concomitant]
  4. TYLENOL [Concomitant]
     Active Substance: ACETAMINOPHEN

REACTIONS (5)
  - Pain in extremity [None]
  - Pain in extremity [None]
  - Back pain [None]
  - Paraesthesia [None]
  - Aneurysm [None]

NARRATIVE: CASE EVENT DATE: 20180401
